FAERS Safety Report 11969528 (Version 1)
Quarter: 2016Q1

REPORT INFORMATION
  Report Type: Spontaneous
  Country: IT (occurrence: IT)
  Receive Date: 20160128
  Receipt Date: 20160128
  Transmission Date: 20160526
  Serious: Yes (Other)
  Sender: FDA-Public Use
  Company Number: IT-WATSON-2016-00925

PATIENT
  Age: 54 Year
  Sex: Female

DRUGS (2)
  1. PREDNISONE (UNKNOWN) [Suspect]
     Active Substance: PREDNISONE
     Indication: PEMPHIGUS
  2. PREDNISONE (UNKNOWN) [Suspect]
     Active Substance: PREDNISONE
     Indication: PSORIASIS
     Dosage: 1 MG/KG, DAILY
     Route: 048

REACTIONS (1)
  - Psoriasis [Recovered/Resolved]
